FAERS Safety Report 16760319 (Version 3)
Quarter: 2019Q4

REPORT INFORMATION
  Report Type: Spontaneous
  Country: US (occurrence: US)
  Receive Date: 20190830
  Receipt Date: 20191030
  Transmission Date: 20200122
  Serious: No
  Sender: FDA-Public Use
  Company Number: US-PFIZER INC-2019374163

PATIENT
  Age: 69 Year
  Sex: Female
  Weight: 88.44 kg

DRUGS (4)
  1. LYRICA [Concomitant]
     Active Substance: PREGABALIN
     Dosage: 300 MG, 1X/DAY (2 CAP AT NIGHT)
  2. GABAPENTIN. [Suspect]
     Active Substance: GABAPENTIN
     Indication: RESTLESS LEGS SYNDROME
     Dosage: 300 MG, 2X/DAY (1 CAPSULE AT NIGHT, 1 CAPSULE IN MORNING)
     Dates: start: 20181204
  3. GABAPENTIN. [Suspect]
     Active Substance: GABAPENTIN
     Dosage: 300 MG, 2X/DAY(1 CAP TWICE A DAY)
     Route: 048
     Dates: start: 201811, end: 20190107
  4. MIRAPEX [Concomitant]
     Active Substance: PRAMIPEXOLE DIHYDROCHLORIDE
     Dosage: 0.5 MG, UNK
     Dates: start: 2013

REACTIONS (4)
  - Nausea [Unknown]
  - Off label use [Unknown]
  - Weight increased [Recovered/Resolved]
  - Drug ineffective for unapproved indication [Unknown]

NARRATIVE: CASE EVENT DATE: 201901
